FAERS Safety Report 18153018 (Version 1)
Quarter: 2020Q3

REPORT INFORMATION
  Report Type: Spontaneous
  Country: CN (occurrence: CN)
  Receive Date: 20200814
  Receipt Date: 20200814
  Transmission Date: 20201103
  Serious: Yes (Hospitalization, Other)
  Sender: FDA-Public Use
  Company Number: CN-BAXTER-2020BAX016333

PATIENT
  Age: 47 Year
  Sex: Female
  Weight: 58 kg

DRUGS (8)
  1. 5% GLUCOSE  INJECTION [Suspect]
     Active Substance: DEXTROSE
     Dosage: DOSE RE?INTRODUCED; DOXORUBICIN HYDROCHLORIDE LIPOSOMAL + GLUCOSE
     Route: 041
  2. DOXORUBICIN HYDROCHLORIDE LIPOSOMAL [Suspect]
     Active Substance: DOXORUBICIN HYDROCHLORIDE
     Indication: BREAST CANCER
     Dosage: DOXORUBICIN HYDROCHLORIDE LIPOSOMAL + 5 % GLUCOSE 100 ML
     Route: 041
     Dates: start: 20200714, end: 20200714
  3. 5% GLUCOSE  INJECTION [Suspect]
     Active Substance: DEXTROSE
     Indication: MEDICATION DILUTION
     Dosage: DOXORUBICIN HYDROCHLORIDE LIPOSOMAL 70 MG + GLUCOSE
     Route: 041
     Dates: start: 20200714, end: 20200714
  4. 0.9% SODIUM CHLORIDE INJECTION [Suspect]
     Active Substance: SODIUM CHLORIDE
     Dosage: DOSE RE?INTRODUCED; ENDOXAN + SODIUM CHLORIDE
     Route: 041
  5. 0.9% SODIUM CHLORIDE INJECTION [Suspect]
     Active Substance: SODIUM CHLORIDE
     Indication: MEDICATION DILUTION
     Dosage: ENDOXAN 1G + SODIUM CHLORIDE
     Route: 041
     Dates: start: 20200714, end: 20200714
  6. DOXORUBICIN HYDROCHLORIDE LIPOSOMAL [Suspect]
     Active Substance: DOXORUBICIN HYDROCHLORIDE
     Dosage: DOSE RE?INTRODUCED; DOXORUBICIN HYDROCHLORIDE LIPOSOMAL + 5 % GLUCOSE
     Route: 041
  7. ENDOXAN [Suspect]
     Active Substance: CYCLOPHOSPHAMIDE
     Indication: BREAST CANCER
     Dosage: ENDOXAN + SODIUM CHLORIDE 100 ML
     Route: 041
     Dates: start: 20200714, end: 20200714
  8. ENDOXAN [Suspect]
     Active Substance: CYCLOPHOSPHAMIDE
     Dosage: DOSE RE?INTRODUCED; ENDOXAN + SODIUM CHLORIDE
     Route: 041

REACTIONS (2)
  - Leukopenia [Recovered/Resolved]
  - Neutropenia [Recovered/Resolved]

NARRATIVE: CASE EVENT DATE: 20200725
